FAERS Safety Report 8080452-9 (Version None)
Quarter: 2012Q1

REPORT INFORMATION
  Report Type: 
  Country: None (occurrence: None)
  Receive Date: 20120130
  Receipt Date: 20120117
  Transmission Date: 20120608
  Serious: Yes (Hospitalization, Other)
  Sender: FDA-Public Use
  Company Number: DE-UCBSA-042205

PATIENT
  Age: 75 Year
  Sex: Female
  Weight: 55 kg

DRUGS (14)
  1. PREDNISOLONE [Concomitant]
     Dosage: 5 MG, 1-0-0
  2. AMITRIPTYLINE HCL [Concomitant]
     Dosage: 25 MG, 0-0-0-1
  3. ALENDRONIC ACID [Concomitant]
  4. NITRENDIPINE [Concomitant]
     Dosage: 20 MG;  0-0-1
  5. CALCIUM D3 [Concomitant]
  6. TORSEMIDE [Concomitant]
     Dosage: 10 MG 1-0-0
  7. CARVEDILOL [Concomitant]
     Dosage: 12.5 MG 1-0-0
  8. FLUPIRTINE MALEATE [Concomitant]
     Dosage: 100 MG, 1-0-1
  9. RAMIPRIL [Concomitant]
     Dosage: 5 MG 1-0-1
  10. ARAVA [Concomitant]
     Dosage: 10 MG, 1-0-0
  11. CIMZIA [Suspect]
     Indication: RHEUMATOID ARTHRITIS
     Route: 058
     Dates: start: 20100611, end: 20110722
  12. FERROUS SULFATE TAB [Suspect]
  13. PANTOPRAZOLE [Concomitant]
     Dosage: 20 MG,
  14. ZOLPIDEM [Concomitant]
     Dosage: 10 MG, 0-0-1

REACTIONS (1)
  - PULMONARY TUBERCULOSIS [None]
